FAERS Safety Report 7815950-3 (Version None)
Quarter: 2011Q4

REPORT INFORMATION
  Report Type: 
  Country: None (occurrence: None)
  Receive Date: 20111014
  Receipt Date: 20110923
  Transmission Date: 20120403
  Serious: Yes (Death)
  Sender: FDA-Public Use
  Company Number: TR-ROCHE-1001681

PATIENT
  Sex: Male

DRUGS (2)
  1. LUCENTIS [Suspect]
     Route: 050
     Dates: start: 20100730
  2. LUCENTIS [Suspect]
     Indication: AGE-RELATED MACULAR DEGENERATION
     Route: 050
     Dates: start: 20080301, end: 20100730

REACTIONS (1)
  - DEATH [None]
